FAERS Safety Report 23834500 (Version 1)
Quarter: 2024Q2

REPORT INFORMATION
  Report Type: Spontaneous
  Country: US (occurrence: US)
  Receive Date: 20240509
  Receipt Date: 20240509
  Transmission Date: 20240715
  Serious: No
  Sender: FDA-Public Use
  Company Number: US-UCBSA-2023028675

PATIENT
  Age: 33 Year
  Sex: Female

DRUGS (1)
  1. CIMZIA [Suspect]
     Active Substance: CERTOLIZUMAB PEGOL
     Indication: Psoriatic arthropathy
     Dosage: 400 MILLIGRAM, EV 2 WEEKS(QOW), AT WEEKS 0, 2 AND 4
     Route: 058
     Dates: start: 20230602

REACTIONS (3)
  - Abdominal pain [Unknown]
  - Injection site swelling [Unknown]
  - Injection site pallor [Unknown]

NARRATIVE: CASE EVENT DATE: 20230603
